FAERS Safety Report 15336168 (Version 1)
Quarter: 2018Q3

REPORT INFORMATION
  Report Type: Spontaneous
  Country: US (occurrence: US)
  Receive Date: 20180827
  Receipt Date: 20180827
  Transmission Date: 20181010
  Serious: No
  Sender: FDA-Public Use
  Company Number: None

PATIENT
  Age: 52 Year
  Sex: Female

DRUGS (1)
  1. SUPARTZ FX [Suspect]
     Active Substance: HYALURONATE SODIUM
     Indication: OSTEOARTHRITIS
     Route: 014
     Dates: start: 20180725, end: 20180725

REACTIONS (3)
  - Joint swelling [None]
  - Visual impairment [None]
  - Lymphadenopathy [None]

NARRATIVE: CASE EVENT DATE: 20180725
